FAERS Safety Report 21517491 (Version 2)
Quarter: 2022Q4

REPORT INFORMATION
  Report Type: Report from Study
  Country: US (occurrence: None)
  Receive Date: 20221028
  Receipt Date: 20221221
  Transmission Date: 20230113
  Serious: Yes (Other)
  Sender: FDA-Public Use
  Company Number: US-Merck Healthcare KGaA-9360720

PATIENT
  Sex: Female

DRUGS (1)
  1. REBIF [Suspect]
     Active Substance: INTERFERON BETA-1A
     Indication: Multiple sclerosis
     Route: 058
     Dates: start: 20170810

REACTIONS (8)
  - Cerebral infarction [Unknown]
  - Lacunar infarction [Unknown]
  - Cerebrovascular accident [Unknown]
  - Blood cholesterol increased [Unknown]
  - Hypoaesthesia [Unknown]
  - Speech disorder [Unknown]
  - Muscular weakness [Unknown]
  - Fatigue [Unknown]
